FAERS Safety Report 4484928-2 (Version None)
Quarter: 2004Q3

REPORT INFORMATION
  Report Type: 
  Country: None (occurrence: None)
  Receive Date: 20040921
  Receipt Date: 20030730
  Transmission Date: 20050211
  Serious: Yes (Hospitalization)
  Sender: FDA-Public Use
  Company Number: 163-20785-03080072 (0)

PATIENT
  Age: 57 Year
  Sex: Male

DRUGS (2)
  1. THALOMID [Suspect]
     Indication: MULTIPLE MYELOMA
     Dosage: 100 MG, DAILY, ORAL
     Route: 048
     Dates: start: 20020813, end: 20030723
  2. MELPHALAN (MELPHALAN) [Suspect]
     Indication: MULTIPLE MYELOMA
     Dosage: 368 MG, INTRAVENOUS
     Route: 042
     Dates: start: 20030424

REACTIONS (3)
  - CHILLS [None]
  - PYREXIA [None]
  - STAPHYLOCOCCAL INFECTION [None]
